FAERS Safety Report 17562471 (Version 1)
Quarter: 2020Q1

REPORT INFORMATION
  Report Type: Spontaneous
  Country: US (occurrence: US)
  Receive Date: 20200319
  Receipt Date: 20200319
  Transmission Date: 20200409
  Serious: No
  Sender: FDA-Public Use
  Company Number: US-EISAI MEDICAL RESEARCH-EC-2020-071601

PATIENT
  Sex: Female

DRUGS (2)
  1. BELVIQ [Suspect]
     Active Substance: LORCASERIN HYDROCHLORIDE
     Route: 048
     Dates: start: 2020, end: 2020
  2. BELVIQ [Suspect]
     Active Substance: LORCASERIN HYDROCHLORIDE
     Indication: WEIGHT DECREASED
     Dosage: THE PATIENT INTERMITTENTLY TOOK BELVIQ DURING THIS TIME
     Route: 048
     Dates: start: 2018

REACTIONS (2)
  - Large intestine polyp [Unknown]
  - Headache [Unknown]

NARRATIVE: CASE EVENT DATE: 2018
